FAERS Safety Report 5609653-3 (Version None)
Quarter: 2008Q1

REPORT INFORMATION
  Report Type: 
  Country: None (occurrence: None)
  Receive Date: 20080131
  Receipt Date: 20080122
  Transmission Date: 20080703
  Serious: Yes (Hospitalization)
  Sender: FDA-Public Use
  Company Number: B0491383B

PATIENT
  Age: 49 Year
  Sex: Female
  Weight: 79.5 kg

DRUGS (7)
  1. LAPATINIB [Suspect]
     Dosage: 1250MG PER DAY
     Route: 048
     Dates: start: 20070927, end: 20071105
  2. CAPECITABINE [Suspect]
     Dosage: 1800MG TWICE PER DAY
     Route: 048
     Dates: start: 20070927, end: 20071105
  3. DEXAMETHASONE TAB [Concomitant]
     Dosage: 5MG TWICE PER DAY
     Route: 048
     Dates: start: 20070516, end: 20071109
  4. PANTOPRAZOL [Concomitant]
     Dosage: 40MG PER DAY
     Route: 048
     Dates: start: 20070808
  5. XANAX [Concomitant]
     Indication: ANXIETY
     Dosage: .5MG PER DAY
     Route: 048
     Dates: start: 20020101
  6. DORMONOCT [Concomitant]
     Indication: ANXIETY
     Route: 048
     Dates: start: 20020101
  7. DEXAMETHASONE TAB [Concomitant]
     Dosage: 5MG PER DAY
     Route: 048
     Dates: start: 20071109

REACTIONS (5)
  - ABDOMINAL PAIN [None]
  - ASTHENIA [None]
  - DYSAESTHESIA [None]
  - GENERAL PHYSICAL HEALTH DETERIORATION [None]
  - MUSCULOSKELETAL PAIN [None]
